FAERS Safety Report 6255541-1 (Version None)
Quarter: 2009Q2

REPORT INFORMATION
  Report Type: 
  Country: None (occurrence: None)
  Receive Date: 20090630
  Receipt Date: 20090621
  Transmission Date: 20091009
  Serious: Yes (Hospitalization)
  Sender: FDA-Public Use
  Company Number: 8043639

PATIENT
  Age: 35 Year
  Sex: Male
  Weight: 104 kg

DRUGS (8)
  1. CDP870 [Suspect]
     Indication: CROHN'S DISEASE
     Dosage: 400 MG SC
     Route: 058
     Dates: start: 20081216, end: 20090226
  2. CALCIUM [Concomitant]
  3. VITAMIN D [Concomitant]
  4. TYLENOL [Concomitant]
  5. CIPROFLOXACIN [Concomitant]
  6. FLAGYL [Concomitant]
  7. NEXIUM [Concomitant]
  8. PREDNISONE [Concomitant]

REACTIONS (5)
  - BACTEROIDES INFECTION [None]
  - BLOOD MAGNESIUM DECREASED [None]
  - BLOOD PHOSPHORUS DECREASED [None]
  - BLOOD POTASSIUM DECREASED [None]
  - SEPSIS [None]
